FAERS Safety Report 4416334-0 (Version None)
Quarter: 2004Q3

REPORT INFORMATION
  Report Type: 
  Country: None (occurrence: None)
  Receive Date: 20040805
  Receipt Date: 20030422
  Transmission Date: 20050211
  Serious: Yes (Hospitalization)
  Sender: FDA-Public Use
  Company Number: US-ROCHE-336474

PATIENT
  Age: 59 Year
  Sex: Female
  Weight: 80.2 kg

DRUGS (6)
  1. CAPECITABINE [Suspect]
     Dosage: ON DAYS 1-14 EVERY 21 DAYS.
     Route: 048
     Dates: start: 20030312, end: 20030409
  2. OXALIPLATIN [Suspect]
     Dosage: ON DAY ONE OF EACH TWENTY ONE DAYS CYCLE.
     Route: 042
     Dates: start: 20030312, end: 20030402
  3. PROTONIX [Concomitant]
     Indication: DRUG USE FOR UNKNOWN INDICATION
     Route: 065
  4. SYNTHROID [Concomitant]
     Indication: DRUG USE FOR UNKNOWN INDICATION
     Route: 065
  5. TIMOLOL MALEATE [Concomitant]
     Indication: DRUG USE FOR UNKNOWN INDICATION
     Route: 065
  6. TYLENOL [Concomitant]
     Indication: DRUG USE FOR UNKNOWN INDICATION
     Route: 065

REACTIONS (16)
  - ACIDOSIS [None]
  - BACTERIAL INFECTION [None]
  - BLOOD CREATININE [None]
  - BLOOD CREATININE INCREASED [None]
  - COMA [None]
  - DIARRHOEA [None]
  - FUNGAL INFECTION [None]
  - GASTROINTESTINAL DISORDER [None]
  - HYPOCALCAEMIA [None]
  - HYPOKALAEMIA [None]
  - HYPONATRAEMIA [None]
  - INFECTION [None]
  - RENAL FAILURE [None]
  - RESPIRATORY FAILURE [None]
  - SEPSIS [None]
  - VOMITING [None]
